FAERS Safety Report 12252620 (Version 2)
Quarter: 2016Q4

REPORT INFORMATION
  Report Type: Spontaneous
  Country: US (occurrence: US)
  Receive Date: 20160411
  Receipt Date: 20161012
  Transmission Date: 20170207
  Serious: No
  Sender: FDA-Public Use
  Company Number: US-PFIZER INC-2016161387

PATIENT
  Age: 47 Year
  Sex: Female
  Weight: 48.53 kg

DRUGS (4)
  1. LYRICA [Suspect]
     Active Substance: PREGABALIN
     Indication: NEURALGIA
     Dosage: UNK
     Dates: start: 201602
  2. LYRICA [Suspect]
     Active Substance: PREGABALIN
     Indication: PARAESTHESIA
     Dosage: 40 MG, UNK
  3. LYRICA [Suspect]
     Active Substance: PREGABALIN
     Indication: FIBROMYALGIA
     Dosage: 60 MG, 1X/DAY (IN THE MORNING)
  4. LYRICA [Suspect]
     Active Substance: PREGABALIN
     Indication: PAIN IN EXTREMITY

REACTIONS (4)
  - Tendon injury [Unknown]
  - Drug dose omission [Unknown]
  - Drug effect incomplete [Unknown]
  - Sleep disorder [Unknown]

NARRATIVE: CASE EVENT DATE: 201602
